FAERS Safety Report 5852235-9 (Version None)
Quarter: 2008Q3

REPORT INFORMATION
  Report Type: 
  Country: None (occurrence: None)
  Receive Date: 20080821
  Receipt Date: 20080811
  Transmission Date: 20090109
  Serious: Yes (Hospitalization)
  Sender: FDA-Public Use
  Company Number: JP-BRISTOL-MYERS SQUIBB COMPANY-14016398

PATIENT
  Age: 38 Year
  Sex: Male
  Weight: 76 kg

DRUGS (17)
  1. ABILIFY [Suspect]
     Indication: SCHIZOPHRENIA
     Dosage: 24MG QD 06NOV07-20DEC07,  24MG QD 20DEC07-ONGOING
     Route: 048
     Dates: start: 20071106
  2. TRIAZOLAM [Concomitant]
     Indication: INSOMNIA
     Dosage: FORM - TABLET
     Route: 048
  3. FLUNITRAZEPAM [Concomitant]
     Indication: INSOMNIA
     Dosage: FORM - TABLET
     Route: 048
  4. LORAZEPAM [Concomitant]
     Indication: RESTLESSNESS
     Dosage: DOSE FORM=TABLET
     Route: 048
     Dates: start: 20071208
  5. LORAZEPAM [Concomitant]
     Indication: INSOMNIA
     Dosage: DOSE FORM=TABLET
     Route: 048
     Dates: start: 20071208
  6. ALPRAZOLAM [Concomitant]
     Indication: ANXIETY
     Dosage: DOSE FORM=TABLET
     Route: 048
     Dates: start: 20040616
  7. RISPERIDONE [Concomitant]
     Indication: SCHIZOPHRENIA
     Dosage: 2 MG FROM 05-DEC-2007 TO 11-DEC-2007. 1 MG FROM 12-DEC-2007 TO CONTINUING DOSE FORM=TABLET
     Route: 048
     Dates: start: 20071205
  8. CHLORPROMAZINE HCL [Concomitant]
     Indication: EXTRAPYRAMIDAL DISORDER
     Dosage: 50 MG FROM 28-NOV-07 TO 11-DEC-07. 25 MG FROM 12-DEC-2007-CONTINUING, DOSAGE FORM - TABLET
     Route: 048
     Dates: start: 20071128
  9. SEPAZON [Concomitant]
     Indication: ANXIETY
     Dosage: DOSE FORM=TABLET
     Route: 048
  10. DEPAS [Concomitant]
     Dosage: TABLET.
     Dates: start: 20080519
  11. SILECE [Concomitant]
     Dosage: TABLET.
     Dates: start: 20080521
  12. GASMOTIN [Concomitant]
     Dosage: TABLET.
     Dates: start: 20080521
  13. PANTOSIN [Concomitant]
     Dosage: TABLET.
     Dates: start: 20080604
  14. MAGNESIUM OXIDE [Concomitant]
     Dosage: TABLET.
     Dates: start: 20080604
  15. BIOFERMIN [Concomitant]
     Dosage: TABLET.
     Dates: start: 20080604
  16. SENNOSIDE [Concomitant]
     Dosage: TABLET.
     Dates: start: 20080604
  17. HALCION [Concomitant]
     Dosage: TABLET.
     Dates: start: 20080604

REACTIONS (3)
  - ASTHENIA [None]
  - BACK PAIN [None]
  - PSYCHIATRIC SYMPTOM [None]
